FAERS Safety Report 21162055 (Version 2)
Quarter: 2022Q3

REPORT INFORMATION
  Report Type: Other
  Country: JP (occurrence: JP)
  Receive Date: 20220802
  Receipt Date: 20220902
  Transmission Date: 20221027
  Serious: Yes (Other)
  Sender: FDA-Public Use
  Company Number: JP-CHUGAI-2022029004

PATIENT
  Age: 73 Year
  Sex: Male
  Weight: 67.3 kg

DRUGS (5)
  1. ATEZOLIZUMAB [Suspect]
     Active Substance: ATEZOLIZUMAB
     Indication: Lung adenocarcinoma
     Dosage: 1200 MILLIGRAM?MOST RECENT DOSE: 14/MAR/2022
     Route: 041
     Dates: start: 20220131
  2. BEVACIZUMAB [Suspect]
     Active Substance: BEVACIZUMAB
     Indication: Lung adenocarcinoma
     Dosage: 1000 MILLIGRAM
     Route: 041
     Dates: start: 20220131, end: 2022
  3. BEVACIZUMAB [Suspect]
     Active Substance: BEVACIZUMAB
     Dosage: 1000 MILLIGRAM?MOST RECENT DOSE: 14/MAR/2022
     Route: 041
  4. CARBOPLATIN [Suspect]
     Active Substance: CARBOPLATIN
     Indication: Lung adenocarcinoma
     Dosage: 400 MILLIGRAM, SINGLE
     Route: 041
     Dates: start: 20220131, end: 20220131
  5. PACLITAXEL [Suspect]
     Active Substance: PACLITAXEL
     Indication: Lung adenocarcinoma
     Dosage: 300 MILLIGRAM, SINGLE
     Route: 041
     Dates: start: 20220131, end: 20220131

REACTIONS (2)
  - Fatigue [Recovered/Resolved]
  - Palmar-plantar erythrodysaesthesia syndrome [Not Recovered/Not Resolved]

NARRATIVE: CASE EVENT DATE: 20220208
